FAERS Safety Report 6031669-6 (Version None)
Quarter: 2009Q1

REPORT INFORMATION
  Report Type: 
  Country: None (occurrence: None)
  Receive Date: 20090107
  Receipt Date: 20090107
  Transmission Date: 20090719
  Serious: Yes (Life-Threatening, Disabling)
  Sender: FDA-Public Use
  Company Number: None

PATIENT
  Sex: Female
  Weight: 98.4306 kg

DRUGS (1)
  1. TRAMADOL HCL [Suspect]
     Indication: MIGRAINE
     Dosage: 1 TABLET 3 X'S A DAY ORAL
     Route: 048
     Dates: start: 20081210, end: 20081212

REACTIONS (6)
  - CHEST PAIN [None]
  - CHRONIC OBSTRUCTIVE PULMONARY DISEASE [None]
  - COUGH [None]
  - DYSPNOEA [None]
  - HEART RATE INCREASED [None]
  - MUSCLE TIGHTNESS [None]
